FAERS Safety Report 14656289 (Version 1)
Quarter: 2018Q1

REPORT INFORMATION
  Report Type: Spontaneous
  Country: US (occurrence: US)
  Receive Date: 20180319
  Receipt Date: 20180319
  Transmission Date: 20180509
  Serious: No
  Sender: FDA-Public Use
  Company Number: None

PATIENT
  Age: 90 Year
  Sex: Male
  Weight: 82.55 kg

DRUGS (2)
  1. MULTIVITAMINS [Concomitant]
     Active Substance: VITAMINS
  2. OSELTAMIVIR [Suspect]
     Active Substance: OSELTAMIVIR

REACTIONS (5)
  - Condition aggravated [None]
  - Cough [None]
  - Pain [None]
  - Pyrexia [None]
  - Abdominal pain upper [None]

NARRATIVE: CASE EVENT DATE: 20180207
